FAERS Safety Report 19129433 (Version 6)
Quarter: 2021Q4

REPORT INFORMATION
  Report Type: Report from Study
  Country: US (occurrence: US)
  Receive Date: 20210413
  Receipt Date: 20211115
  Transmission Date: 20220303
  Serious: No
  Sender: FDA-Public Use
  Company Number: NVSC2021US082676

PATIENT
  Sex: Male

DRUGS (3)
  1. BEOVU [Suspect]
     Active Substance: BROLUCIZUMAB-DBLL
     Indication: Neovascular age-related macular degeneration
     Dosage: UNK,(EVERY 8 WEEK)
     Route: 047
     Dates: start: 202001
  2. BEOVU [Suspect]
     Active Substance: BROLUCIZUMAB-DBLL
     Dosage: UNK (Q8WKS)
     Route: 031
     Dates: start: 20200130
  3. BEOVU [Suspect]
     Active Substance: BROLUCIZUMAB-DBLL
     Dosage: UNK
     Route: 047

REACTIONS (9)
  - Metamorphopsia [Unknown]
  - Vitreous floaters [Unknown]
  - Vision blurred [Unknown]
  - Hypoacusis [Unknown]
  - Weight decreased [Unknown]
  - Blister [Unknown]
  - Inflammation [Unknown]
  - Peripheral vascular disorder [Unknown]
  - Body dysmorphic disorder [Unknown]
